FAERS Safety Report 17053902 (Version 1)
Quarter: 2019Q4

REPORT INFORMATION
  Report Type: Spontaneous
  Country: FR (occurrence: FR)
  Receive Date: 20191120
  Receipt Date: 20191120
  Transmission Date: 20200122
  Serious: Yes (Other)
  Sender: FDA-Public Use
  Company Number: FR-ALLERGAN-1946666US

PATIENT
  Sex: Male
  Weight: 77.5 kg

DRUGS (3)
  1. RIFADINE [Interacting]
     Active Substance: RIFAMPIN
     Indication: NECROTISING FASCIITIS
     Dosage: 1200 MG, QD
     Route: 048
     Dates: start: 20190523, end: 20190823
  2. TERCIAN [Concomitant]
     Active Substance: CYAMEMAZINE
     Indication: DEPRESSION
     Route: 048
     Dates: end: 20190829
  3. CITALOPRAM HYDROBROMIDE - BP [Suspect]
     Active Substance: CITALOPRAM HYDROBROMIDE
     Indication: DEPRESSION
     Route: 048

REACTIONS (2)
  - Drug interaction [Recovered/Resolved]
  - Depression [Recovering/Resolving]

NARRATIVE: CASE EVENT DATE: 201908
